FAERS Safety Report 9244672 (Version 2)
Quarter: 2013Q2

REPORT INFORMATION
  Report Type: Spontaneous
  Country: CN (occurrence: CN)
  Receive Date: 20130422
  Receipt Date: 20130604
  Transmission Date: 20140414
  Serious: Yes (Hospitalization)
  Sender: FDA-Public Use
  Company Number: CN-BRISTOL-MYERS SQUIBB COMPANY-18778852

PATIENT
  Age: 55 Year
  Sex: Female

DRUGS (1)
  1. GLUCOPHAGE TABS [Suspect]
     Dosage: THE PATIENT TOOK 160 TABS
     Dates: start: 20130410, end: 20130410

REACTIONS (6)
  - Intentional overdose [Unknown]
  - Suicide attempt [Unknown]
  - Hypoglycaemia [Unknown]
  - Shock [Recovered/Resolved]
  - Lactic acidosis [Unknown]
  - Renal impairment [Recovered/Resolved]
